FAERS Safety Report 7251252-4 (Version None)
Quarter: 2011Q1

REPORT INFORMATION
  Report Type: 
  Country: None (occurrence: None)
  Receive Date: 20110119
  Receipt Date: 20110104
  Transmission Date: 20110831
  Serious: Yes (Hospitalization)
  Sender: FDA-Public Use
  Company Number: AUR-APL-2011-00041

PATIENT
  Age: 39 Year
  Sex: Female

DRUGS (6)
  1. ALPRAZOLAM [Suspect]
  2. ALCOHOL [Suspect]
  3. BENZODIAZEPINE [Concomitant]
  4. CITALOPRAM [Suspect]
  5. CAFFEINE [Concomitant]
  6. PARACETAMOL [Suspect]

REACTIONS (9)
  - COMA [None]
  - BLOOD LACTIC ACID INCREASED [None]
  - ASPARTATE AMINOTRANSFERASE INCREASED [None]
  - ALANINE AMINOTRANSFERASE INCREASED [None]
  - OVERDOSE [None]
  - LIVER INJURY [None]
  - PROTHROMBIN TIME PROLONGED [None]
  - ACIDOSIS [None]
  - PCO2 DECREASED [None]
